FAERS Safety Report 4583281-3 (Version None)
Quarter: 2005Q1

REPORT INFORMATION
  Report Type: 
  Country: None (occurrence: None)
  Receive Date: 20050125
  Receipt Date: 20040902
  Transmission Date: 20050727
  Serious: No
  Sender: FDA-Public Use
  Company Number: USA040669960

PATIENT
  Age: 71 Year
  Sex: Female
  Weight: 55 kg

DRUGS (3)
  1. FORTEO [Suspect]
     Indication: OSTEOPOROSIS
     Dosage: 20 UG/1 EVERY OTHER DAY
     Dates: start: 20040607
  2. CELEBREX [Concomitant]
  3. PLAQUENIL [Concomitant]

REACTIONS (6)
  - ABDOMINAL PAIN UPPER [None]
  - CHEST DISCOMFORT [None]
  - FEELING ABNORMAL [None]
  - INJECTION SITE HAEMORRHAGE [None]
  - NAUSEA [None]
  - SLUGGISHNESS [None]
